FAERS Safety Report 25192768 (Version 1)
Quarter: 2025Q2

REPORT INFORMATION
  Report Type: Spontaneous
  Country: US (occurrence: None)
  Receive Date: 20250414
  Receipt Date: 20250414
  Transmission Date: 20250717
  Serious: Yes (Life-Threatening, Hospitalization)
  Sender: FDA-CTU
  Company Number: None

PATIENT
  Age: 84 Year
  Sex: Female
  Weight: 44.7 kg

DRUGS (2)
  1. TNKASE [Suspect]
     Active Substance: TENECTEPLASE
     Indication: Cerebrovascular accident
     Route: 040
     Dates: start: 20250412, end: 20250412
  2. MIDAZOLAM [Concomitant]
     Active Substance: MIDAZOLAM
     Dates: start: 20250412, end: 20250413

REACTIONS (1)
  - Angioedema [None]

NARRATIVE: CASE EVENT DATE: 20250412
